FAERS Safety Report 7068952-1 (Version None)
Quarter: 2010Q4

REPORT INFORMATION
  Report Type: 
  Country: None (occurrence: None)
  Receive Date: 20101028
  Receipt Date: 20101019
  Transmission Date: 20110411
  Serious: Yes (Life-Threatening)
  Sender: FDA-Public Use
  Company Number: US-ABBOTT-10P-163-0679464-00

PATIENT
  Sex: Female
  Weight: 52.21 kg

DRUGS (3)
  1. HUMIRA [Suspect]
     Indication: CROHN'S DISEASE
  2. REMICADE [Suspect]
     Indication: CROHN'S DISEASE
     Dosage: LYOPHILIZED, 3 INFUSION PRIOR TO BASELINE
     Route: 042
  3. REMICADE [Suspect]
     Dosage: LYOPHILIZED
     Route: 042
     Dates: start: 20020717

REACTIONS (3)
  - ABDOMINAL ABSCESS [None]
  - CROHN'S DISEASE [None]
  - FISTULA [None]
